FAERS Safety Report 18408209 (Version 2)
Quarter: 2020Q4

REPORT INFORMATION
  Report Type: Report from Study
  Country: None (occurrence: US)
  Receive Date: 20201021
  Receipt Date: 20201126
  Transmission Date: 20210114
  Serious: Yes (Hospitalization)
  Sender: FDA-Public Use
  Company Number: US-ABBVIE-20K-163-3613992-00

PATIENT
  Sex: Female
  Weight: 49.49 kg

DRUGS (1)
  1. CREON [Suspect]
     Active Substance: PANCRELIPASE AMYLASE\PANCRELIPASE LIPASE\PANCRELIPASE PROTEASE
     Indication: PANCREATIC FAILURE
     Dosage: 2 CAPSULES PER MEAL AND 1 CAPSULE WITH SNACK?STARTED :6 TO 8 WEEKS
     Route: 048
     Dates: start: 202009

REACTIONS (1)
  - Renal cancer [Recovering/Resolving]
